FAERS Safety Report 15113715 (Version 1)
Quarter: 2018Q3

REPORT INFORMATION
  Report Type: Spontaneous
  Country: RU (occurrence: RU)
  Receive Date: 20180706
  Receipt Date: 20180706
  Transmission Date: 20181010
  Serious: Yes (Other)
  Sender: FDA-Public Use
  Company Number: RU-ASTRAZENECA-2017SE86264

PATIENT
  Age: 78 Year
  Sex: Female
  Weight: 72 kg

DRUGS (8)
  1. CARDIOMAGNYL [Concomitant]
     Active Substance: ASPIRIN\MAGNESIUM HYDROXIDE
  2. RIVAROXABAN [Concomitant]
     Active Substance: RIVAROXABAN
  3. CARVEDILOL. [Concomitant]
     Active Substance: CARVEDILOL
  4. OMEPRAZOLE. [Concomitant]
     Active Substance: OMEPRAZOLE
  5. BRILINTA [Suspect]
     Active Substance: TICAGRELOR
     Indication: MYOCARDIAL INFARCTION
     Route: 048
     Dates: start: 20170626
  6. MOXONIDINE [Concomitant]
     Active Substance: MOXONIDINE
  7. ROSUVASTATIN. [Concomitant]
     Active Substance: ROSUVASTATIN
  8. WARFARIN [Concomitant]
     Active Substance: WARFARIN

REACTIONS (4)
  - Blood pressure increased [Unknown]
  - Myocardial infarction [Unknown]
  - Blood glucose increased [Unknown]
  - Contusion [Not Recovered/Not Resolved]

NARRATIVE: CASE EVENT DATE: 20170617
